FAERS Safety Report 16169661 (Version 2)
Quarter: 2019Q4

REPORT INFORMATION
  Report Type: Spontaneous
  Country: US (occurrence: US)
  Receive Date: 20190408
  Receipt Date: 20191007
  Transmission Date: 20200122
  Serious: Yes (Other)
  Sender: FDA-Public Use
  Company Number: US-PFIZER INC-2017260490

PATIENT
  Age: 48 Year
  Sex: Female
  Weight: 70 kg

DRUGS (8)
  1. LYRICA [Suspect]
     Active Substance: PREGABALIN
     Indication: NEUROPATHY PERIPHERAL
     Dosage: 150 MG, 2X/DAY
     Route: 048
     Dates: start: 20170605, end: 20180605
  2. PREMARIN [Suspect]
     Active Substance: ESTROGENS, CONJUGATED
     Dosage: 0.625 MG, CYCLIC [TAKE DAILY FOR 21 DAYS THEN DO NOT TAKE FOR 7 DAYS]
     Route: 048
     Dates: start: 20170605, end: 20180605
  3. LYRICA [Suspect]
     Active Substance: PREGABALIN
     Indication: NEURALGIA
     Dosage: 150 MG, 2X/DAY
     Route: 048
     Dates: start: 2006
  4. LYRICA [Suspect]
     Active Substance: PREGABALIN
     Indication: POLYNEUROPATHY
     Dosage: 150 MG, 2X/DAY
     Route: 048
     Dates: start: 20170822, end: 20180822
  5. PREMARIN [Suspect]
     Active Substance: ESTROGENS, CONJUGATED
     Indication: HYSTERECTOMY
     Dosage: UNK
     Route: 048
  6. PREMARIN [Suspect]
     Active Substance: ESTROGENS, CONJUGATED
     Dosage: 0.625 MG, CYCLIC [TAKE DAILY FOR 21 DAYS THEN DO NOT TAKE FOR 7 DAYS]
     Route: 048
     Dates: start: 20170822, end: 20180822
  7. GABAPENTIN. [Concomitant]
     Active Substance: GABAPENTIN
     Indication: TOXIC NEUROPATHY
     Dosage: UNK
     Dates: start: 201809
  8. GABAPENTIN. [Concomitant]
     Active Substance: GABAPENTIN
     Indication: NEUROPATHY PERIPHERAL

REACTIONS (4)
  - Dyspnoea [Unknown]
  - Pain [Unknown]
  - Weight decreased [Unknown]
  - Neoplasm malignant [Recovered/Resolved]

NARRATIVE: CASE EVENT DATE: 2006
